FAERS Safety Report 7898019 (Version 5)
Quarter: 2018Q4

REPORT INFORMATION
  Report Type: Report from Study
  Country: JP (occurrence: JP)
  Receive Date: 20110413
  Receipt Date: 20181227
  Transmission Date: 20190205
  Serious: Yes (Hospitalization, Other)
  Sender: FDA-Public Use
  Company Number: PHHY2010JP54253

PATIENT
  Age: 74 Year
  Sex: Male

DRUGS (6)
  1. GLIVEC [Suspect]
     Active Substance: IMATINIB MESYLATE
     Dosage: 400 MG, QD
     Route: 048
     Dates: start: 200706, end: 20090626
  2. GLIVEC [Suspect]
     Active Substance: IMATINIB MESYLATE
     Dosage: 200 MG, QD
     Route: 048
     Dates: start: 200702
  3. GLIVEC [Suspect]
     Active Substance: IMATINIB MESYLATE
     Dosage: 200 MG, QD
     Route: 048
  4. GLIVEC [Suspect]
     Active Substance: IMATINIB MESYLATE
     Indication: CHRONIC MYELOID LEUKAEMIA
     Dosage: 300 MG, QD
     Route: 048
     Dates: start: 20061005, end: 200612
  5. GLIVEC [Suspect]
     Active Substance: IMATINIB MESYLATE
     Dosage: 100 MG, QD
     Route: 048
     Dates: start: 2007
  6. GLIVEC [Suspect]
     Active Substance: IMATINIB MESYLATE
     Dosage: 300 MG, QD
     Route: 048
     Dates: start: 200703

REACTIONS (17)
  - White blood cell count decreased [Unknown]
  - Wheezing [Recovered/Resolved]
  - Ascites [Recovering/Resolving]
  - Cough [Unknown]
  - Gastrointestinal haemorrhage [Recovering/Resolving]
  - Urine output increased [Unknown]
  - Abdominal distension [Recovering/Resolving]
  - Occult blood positive [Recovered/Resolved]
  - Pruritus [Recovered/Resolved]
  - Hepatic cirrhosis [Unknown]
  - Oedema peripheral [Recovered/Resolved]
  - Fluid retention [Recovering/Resolving]
  - Pleural effusion [Recovering/Resolving]
  - Gastrointestinal mucosal disorder [Recovered/Resolved]
  - Decreased appetite [Recovered/Resolved]
  - Rash [Recovered/Resolved]
  - Physical deconditioning [Unknown]

NARRATIVE: CASE EVENT DATE: 200612
